FAERS Safety Report 6417497-8 (Version None)
Quarter: 2009Q4

REPORT INFORMATION
  Report Type: 
  Country: None (occurrence: None)
  Receive Date: 20091027
  Receipt Date: 20091027
  Transmission Date: 20100525
  Serious: Yes (Hospitalization)
  Sender: FDA-Public Use
  Company Number: None

PATIENT
  Sex: Female
  Weight: 101.4 kg

DRUGS (7)
  1. ZOMETA [Suspect]
     Dosage: 4 MG
     Dates: end: 20090922
  2. DARVOCET-N 100 [Concomitant]
  3. FAMOTIDINE [Concomitant]
  4. SENOKOT [Concomitant]
  5. SUDAFED 12 HOUR [Concomitant]
  6. TAMOXIFEN CITRATE [Concomitant]
  7. CALTRATE [Concomitant]

REACTIONS (1)
  - GUILLAIN-BARRE SYNDROME [None]
